FAERS Safety Report 16042542 (Version 1)
Quarter: 2019Q1

REPORT INFORMATION
  Report Type: Spontaneous
  Country: US (occurrence: US)
  Receive Date: 20190306
  Receipt Date: 20190306
  Transmission Date: 20190418
  Serious: Yes (Hospitalization)
  Sender: FDA-Public Use
  Company Number: US-B.I. PHARMACEUTICALS,INC./RIDGEFIELD-2019-BI-009070

PATIENT
  Age: 82 Year
  Sex: Female
  Weight: 88.45 kg

DRUGS (6)
  1. MOBIC [Suspect]
     Active Substance: MELOXICAM
     Indication: ARTHRITIS
     Route: 048
     Dates: start: 201809, end: 201810
  2. ADVIL LIQUI GELS [Concomitant]
     Indication: PAIN
     Dosage: FORMULATION: LIQUIGELS
     Route: 048
     Dates: start: 20181029, end: 20181029
  3. METHIZOL [Concomitant]
     Active Substance: METHIMAZOLE
     Indication: HYPERTHYROIDISM
     Dosage: 5MG TABLETS 4 DAYS A WEEK. 2.5MG TABLET 3 DAYS A WEEK BY MOUTH
     Route: 048
  4. LOPRESSOR [Concomitant]
     Active Substance: METOPROLOL TARTRATE
     Indication: HYPERTENSION
     Dosage: TAKING FOR 20 TO 30 YEAR. DOSAGE CHANGES SOMETIMES. CURRENTLY TAKES 50MG TWICE A DAY BY MOUTH
     Route: 048
  5. LOPRESSOR [Concomitant]
     Active Substance: METOPROLOL TARTRATE
     Route: 048
  6. ADVIL [Suspect]
     Active Substance: IBUPROFEN
     Indication: PAIN
     Dosage: FREQUENCY TEXT: 1 TABLET AS SHE LIKED TO AND NOT MORE THAN 1 TABLET A DAY BY MOUTH
     Route: 048
     Dates: start: 201807, end: 201810

REACTIONS (1)
  - Cardiac disorder [Unknown]

NARRATIVE: CASE EVENT DATE: 201810
